FAERS Safety Report 4883310-3 (Version None)
Quarter: 2006Q1

REPORT INFORMATION
  Report Type: 
  Country: None (occurrence: None)
  Receive Date: 20060118
  Receipt Date: 20060111
  Transmission Date: 20060701
  Serious: Yes (Other)
  Sender: FDA-Public Use
  Company Number: US-GLAXOSMITHKLINE-A0588783A

PATIENT
  Sex: Female

DRUGS (8)
  1. ADVAIR DISKUS 250/50 [Suspect]
     Indication: ASTHMA
     Dosage: 1PUFF PER DAY
     Route: 055
  2. SEREVENT [Suspect]
     Indication: ASTHMA
     Route: 055
  3. ALBUTEROL (VENTOLIN) [Suspect]
     Indication: ASTHMA
     Route: 055
  4. ALLEGRA [Concomitant]
  5. SINGULAIR [Concomitant]
  6. NASACORT [Concomitant]
  7. LASIX [Concomitant]
  8. LEVAQUIN [Concomitant]

REACTIONS (3)
  - MUSCLE SPASMS [None]
  - PALPITATIONS [None]
  - PNEUMONIA [None]
